FAERS Safety Report 9267565 (Version 2)
Quarter: 2013Q3

REPORT INFORMATION
  Report Type: Spontaneous
  Country: AU (occurrence: AU)
  Receive Date: 20130502
  Receipt Date: 20130705
  Transmission Date: 20140515
  Serious: Yes (Death)
  Sender: FDA-Public Use
  Company Number: AU-GLAXOSMITHKLINE-B0888766A

PATIENT
  Age: 50 Year
  Sex: Male

DRUGS (4)
  1. VOTRIENT [Suspect]
     Indication: LIVER FUNCTION TEST ABNORMAL
     Route: 065
     Dates: start: 20121120, end: 20130402
  2. PERINDOPRIL [Concomitant]
     Indication: HYPERTENSION
  3. AMLODIPINE [Concomitant]
     Indication: HYPERTENSION
  4. DEXAMETHASONE [Concomitant]

REACTIONS (13)
  - Metastatic neoplasm [Fatal]
  - Metastases to liver [Unknown]
  - Hepatotoxicity [Not Recovered/Not Resolved]
  - Blood bilirubin increased [Unknown]
  - Yellow skin [Unknown]
  - Jaundice [Unknown]
  - Decreased appetite [Unknown]
  - Liver function test abnormal [Unknown]
  - Renal mass [Unknown]
  - Cholelithiasis [Unknown]
  - Gallbladder disorder [Unknown]
  - Portal vein thrombosis [Unknown]
  - Splenomegaly [Unknown]
